FAERS Safety Report 25446678 (Version 1)
Quarter: 2025Q2

REPORT INFORMATION
  Report Type: Spontaneous
  Country: US (occurrence: US)
  Receive Date: 20250617
  Receipt Date: 20250617
  Transmission Date: 20250717
  Serious: No
  Sender: UCB
  Company Number: US-UCBSA-2025026105

PATIENT
  Age: 60 Year
  Sex: Female

DRUGS (1)
  1. BIMZELX [Suspect]
     Active Substance: BIMEKIZUMAB-BKZX
     Indication: Psoriasis
     Dosage: 320 MILLIGRAM, EV 4 WEEKS
     Route: 058

REACTIONS (7)
  - Upper respiratory tract infection [Unknown]
  - Illness [Unknown]
  - Rash [Unknown]
  - Asthma [Unknown]
  - Burning sensation [Unknown]
  - Injection site rash [Unknown]
  - Pain [Unknown]

NARRATIVE: CASE EVENT DATE: 20250401
